FAERS Safety Report 5009242-8 (Version None)
Quarter: 2006Q2

REPORT INFORMATION
  Report Type: 
  Country: None (occurrence: None)
  Receive Date: 20060519
  Receipt Date: 20060510
  Transmission Date: 20061013
  Serious: Yes (Hospitalization, Other)
  Sender: FDA-Public Use
  Company Number: ITWYE586227APR06

PATIENT
  Age: 44 Year
  Sex: Male

DRUGS (22)
  1. SIROLIMUS (SIROLIMUS, TABLET) [Suspect]
     Indication: PROPHYLAXIS AGAINST TRANSPLANT REJECTION
     Dosage: SEE IMAGE
     Dates: start: 20051222, end: 20051222
  2. SIROLIMUS (SIROLIMUS, TABLET) [Suspect]
     Indication: PROPHYLAXIS AGAINST TRANSPLANT REJECTION
     Dosage: SEE IMAGE
     Dates: start: 20051223, end: 20060116
  3. SIROLIMUS (SIROLIMUS, TABLET) [Suspect]
     Indication: PROPHYLAXIS AGAINST TRANSPLANT REJECTION
     Dosage: SEE IMAGE
     Dates: start: 20060117, end: 20060124
  4. SIROLIMUS (SIROLIMUS, TABLET) [Suspect]
     Indication: PROPHYLAXIS AGAINST TRANSPLANT REJECTION
     Dosage: SEE IMAGE
     Dates: start: 20060125, end: 20060128
  5. SIROLIMUS (SIROLIMUS, TABLET) [Suspect]
     Indication: PROPHYLAXIS AGAINST TRANSPLANT REJECTION
     Dosage: SEE IMAGE
     Dates: start: 20060129, end: 20060322
  6. SIROLIMUS (SIROLIMUS, TABLET) [Suspect]
     Indication: PROPHYLAXIS AGAINST TRANSPLANT REJECTION
     Dosage: SEE IMAGE
     Dates: start: 20060323, end: 20060508
  7. SIROLIMUS (SIROLIMUS, TABLET) [Suspect]
     Indication: PROPHYLAXIS AGAINST TRANSPLANT REJECTION
     Dosage: SEE IMAGE
     Dates: start: 20060509
  8. CYCLOSPORINE [Concomitant]
  9. CYCLOSPORINE [Concomitant]
  10. PREDNISONE TAB [Concomitant]
  11. PREDNISONE TAB [Concomitant]
  12. PREDNISONE TAB [Concomitant]
  13. RANITIDINE [Concomitant]
  14. GALENIC /SULFADIAZINE/TRIMETHOPRIM/ (SULFADIAZINE/TRIAMETHOPRIM) [Concomitant]
  15. CARVEDILOL [Concomitant]
  16. FLUVASTATIN (FLUVASTATIN) [Concomitant]
  17. ENALAPRIL MALEATE [Concomitant]
  18. FUROSEMIDE [Concomitant]
  19. DOXAZOSIN (DOXAZOSIN) [Concomitant]
  20. AMOXI-CLAVULANICO (AMOXICILLIN/CLAVULANIC ACID) [Concomitant]
  21. AMLODIPINE [Concomitant]
  22. VALSARTAN [Concomitant]

REACTIONS (4)
  - BLOOD CREATININE INCREASED [None]
  - DIABETES MELLITUS [None]
  - KIDNEY TRANSPLANT REJECTION [None]
  - NEPHROPATHY TOXIC [None]
